FAERS Safety Report 5924450-7 (Version None)
Quarter: 2008Q4

REPORT INFORMATION
  Report Type: 
  Country: None (occurrence: None)
  Receive Date: 20081020
  Receipt Date: 20081013
  Transmission Date: 20090506
  Serious: No
  Sender: FDA-Public Use
  Company Number: US-B.I. PHARMACEUTICALS,INC./RIDGEFIELD-2008-BP-15255BP

PATIENT
  Sex: Male

DRUGS (11)
  1. SPIRIVA [Suspect]
     Indication: CHRONIC OBSTRUCTIVE PULMONARY DISEASE
     Dosage: 18MCG
     Route: 055
     Dates: start: 20070101, end: 20070101
  2. LIPITOR [Concomitant]
  3. FELODIPINE [Concomitant]
     Indication: HYPERTENSION
  4. ASPIRIN [Concomitant]
     Indication: CORONARY ARTERY DISEASE
  5. VALSARTAN [Concomitant]
     Indication: HYPERTENSION
  6. METOPROLOL TARTRATE [Concomitant]
     Indication: HYPERTENSION
  7. HYDROCHLOROTHIAZIDE [Concomitant]
     Indication: HYPERTENSION
  8. PANTOPRAZOLE SODIUM [Concomitant]
  9. PLAVIX [Concomitant]
     Indication: POOR PERIPHERAL CIRCULATION
  10. NITROGLYCERIN [Concomitant]
     Indication: CORONARY ARTERY DISEASE
  11. FOLIC ACID [Concomitant]

REACTIONS (1)
  - URINARY RETENTION [None]
